FAERS Safety Report 17321513 (Version 1)
Quarter: 2020Q1

REPORT INFORMATION
  Report Type: Spontaneous
  Country: PH (occurrence: PH)
  Receive Date: 20200126
  Receipt Date: 20200126
  Transmission Date: 20200409
  Serious: Yes (Other)
  Sender: FDA-Public Use
  Company Number: PH-BRISTOL-MYERS SQUIBB COMPANY-BMS-2020-004115

PATIENT
  Age: 23 Year
  Sex: Male

DRUGS (1)
  1. DASATINIB. [Suspect]
     Active Substance: DASATINIB
     Indication: CHRONIC MYELOID LEUKAEMIA
     Dosage: 100 MILLIGRAM
     Route: 065

REACTIONS (1)
  - Philadelphia chromosome positive [Unknown]

NARRATIVE: CASE EVENT DATE: 201912
